FAERS Safety Report 5782845-9 (Version None)
Quarter: 2008Q2

REPORT INFORMATION
  Report Type: 
  Country: None (occurrence: None)
  Receive Date: 20080624
  Receipt Date: 20080612
  Transmission Date: 20081010
  Serious: Yes (Hospitalization)
  Sender: FDA-Public Use
  Company Number: US-WYE-H04488608

PATIENT
  Sex: Male

DRUGS (1)
  1. TORISEL [Suspect]
     Indication: RENAL CELL CARCINOMA
     Dosage: 25 MG WEEKLY FOR 2-3 DOSES
     Route: 042

REACTIONS (2)
  - CARDIOTOXICITY [None]
  - EJECTION FRACTION DECREASED [None]
